FAERS Safety Report 12226463 (Version 2)
Quarter: 2016Q2

REPORT INFORMATION
  Report Type: Spontaneous
  Country: US (occurrence: US)
  Receive Date: 20160331
  Receipt Date: 20160407
  Transmission Date: 20160815
  Serious: Yes (Other)
  Sender: FDA-Public Use
  Company Number: PHHY2016US041520

PATIENT
  Age: 45 Year
  Sex: Female

DRUGS (2)
  1. ATENOLOL. [Concomitant]
     Active Substance: ATENOLOL
     Indication: HYPERTENSION
     Route: 065
  2. IMATINIB [Suspect]
     Active Substance: IMATINIB
     Indication: CHRONIC MYELOID LEUKAEMIA
     Route: 065

REACTIONS (5)
  - Blindness [Recovered/Resolved]
  - Pupillary reflex impaired [Recovered/Resolved]
  - Blast crisis in myelogenous leukaemia [Unknown]
  - Papilloedema [Recovering/Resolving]
  - Chronic myeloid leukaemia recurrent [Unknown]
